FAERS Safety Report 9344581 (Version 2)
Quarter: 2013Q2

REPORT INFORMATION
  Report Type: Spontaneous
  Country: PH (occurrence: PH)
  Receive Date: 20130612
  Receipt Date: 20130621
  Transmission Date: 20140414
  Serious: Yes (Death, Life-Threatening, Other)
  Sender: FDA-Public Use
  Company Number: PH-MERCK-1306PHL005013

PATIENT
  Age: 71 Year
  Sex: Male

DRUGS (1)
  1. JANUVIA [Suspect]
     Dosage: UNKNOWN
     Route: 048

REACTIONS (1)
  - Cardiac arrest [Fatal]
